FAERS Safety Report 16918395 (Version 1)
Quarter: 2019Q4

REPORT INFORMATION
  Report Type: Spontaneous
  Country: FR (occurrence: FR)
  Receive Date: 20191015
  Receipt Date: 20191015
  Transmission Date: 20200122
  Serious: Yes (Hospitalization)
  Sender: FDA-Public Use
  Company Number: FR-EISAI MEDICAL RESEARCH-EC-2019-063302

PATIENT
  Age: 41 Year
  Sex: Female
  Weight: 56 kg

DRUGS (6)
  1. FYCOMPA [Suspect]
     Active Substance: PERAMPANEL
     Indication: EPILEPSY
     Route: 048
     Dates: start: 20190218
  2. AVASTIN [Suspect]
     Active Substance: BEVACIZUMAB
     Indication: ANAPLASTIC ASTROCYTOMA
     Dosage: DOSE AND FREQUENCY UNKNOWN
     Route: 042
     Dates: start: 20190313, end: 20190409
  3. KEPPRA [Suspect]
     Active Substance: LEVETIRACETAM
     Indication: EPILEPSY
     Route: 048
  4. DEPAKINE [Suspect]
     Active Substance: VALPROATE SODIUM
     Indication: PRODUCT USED FOR UNKNOWN INDICATION
     Dosage: DOSE AND FREQUENCY UNKNOWN
     Route: 048
     Dates: end: 20190313
  5. NEXIUM [Suspect]
     Active Substance: ESOMEPRAZOLE MAGNESIUM
     Indication: ABDOMINAL PAIN UPPER
     Route: 048
     Dates: end: 20190523
  6. VIMPAT [Suspect]
     Active Substance: LACOSAMIDE
     Indication: EPILEPSY
     Route: 048

REACTIONS (3)
  - Hepatocellular injury [Recovered/Resolved]
  - Rash pruritic [Recovered/Resolved]
  - Cholestasis [Not Recovered/Not Resolved]

NARRATIVE: CASE EVENT DATE: 20190320
